FAERS Safety Report 10772346 (Version 3)
Quarter: 2015Q1

REPORT INFORMATION
  Report Type: Spontaneous
  Country: US (occurrence: US)
  Receive Date: 20150207
  Receipt Date: 20150306
  Transmission Date: 20150721
  Serious: Yes (Other)
  Sender: FDA-Public Use
  Company Number: US-UCBSA-2015003022

PATIENT
  Age: 54 Year
  Sex: Male
  Weight: 86 kg

DRUGS (8)
  1. PRIMIDONE. [Suspect]
     Active Substance: PRIMIDONE
     Indication: SEIZURE
     Dosage: 750 MG, 2X/DAY (BID)
  2. TEGRETOL [Suspect]
     Active Substance: CARBAMAZEPINE
     Indication: SEIZURE
     Dosage: UNK
  3. KEPPRA [Suspect]
     Active Substance: LEVETIRACETAM
     Indication: SEIZURE
     Dosage: UNK
     Route: 048
  4. NEURONTIN [Suspect]
     Active Substance: GABAPENTIN
     Indication: SEIZURE
     Dosage: UNK
  5. DILANTIN [Suspect]
     Active Substance: PHENYTOIN
     Indication: SEIZURE
     Dosage: 200 MG, 2X/DAY (BID)
  6. LAMICTAL [Suspect]
     Active Substance: LAMOTRIGINE
     Indication: SEIZURE
     Dosage: UNK
  7. GABITRIL [Suspect]
     Active Substance: TIAGABINE HYDROCHLORIDE
     Indication: SEIZURE
     Dosage: UNK
  8. TOPAMAX [Suspect]
     Active Substance: TOPIRAMATE
     Indication: SEIZURE
     Dosage: UNK

REACTIONS (10)
  - Dizziness [Recovered/Resolved]
  - Weight decreased [Unknown]
  - Confusional state [Unknown]
  - Headache [Recovered/Resolved]
  - Non-Hodgkin^s lymphoma [Unknown]
  - Drug ineffective [Unknown]
  - Malaise [Recovered/Resolved]
  - Balance disorder [Unknown]
  - Dysarthria [Unknown]
  - Sleep disorder [Unknown]

NARRATIVE: CASE EVENT DATE: 20141223
